FAERS Safety Report 20132800 (Version 3)
Quarter: 2022Q1

REPORT INFORMATION
  Report Type: Report from Study
  Country: US (occurrence: US)
  Receive Date: 20211130
  Receipt Date: 20220310
  Transmission Date: 20220423
  Serious: No
  Sender: FDA-Public Use
  Company Number: US-NOVARTISTESTPH-NVSC2021US273173

PATIENT
  Sex: Male

DRUGS (1)
  1. COSENTYX [Suspect]
     Active Substance: SECUKINUMAB
     Indication: Ankylosing spondylitis
     Dosage: 150 MG (ONCE A WEEK FOR 5 WEEKS AND THEN Q4W)
     Route: 058

REACTIONS (4)
  - Musculoskeletal stiffness [Recovering/Resolving]
  - Pain [Not Recovered/Not Resolved]
  - Posture abnormal [Not Recovered/Not Resolved]
  - Drug ineffective [Unknown]
